FAERS Safety Report 19005283 (Version 1)
Quarter: 2021Q1

REPORT INFORMATION
  Report Type: Report from Study
  Country: None (occurrence: BR)
  Receive Date: 20210312
  Receipt Date: 20210312
  Transmission Date: 20210420
  Serious: Yes (Other)
  Sender: FDA-Public Use
  Company Number: BR-ABBVIE-21P-020-3813543-00

PATIENT
  Sex: Female
  Weight: 78 kg

DRUGS (11)
  1. RIVOTRIL [Concomitant]
     Active Substance: CLONAZEPAM
     Indication: SEIZURE
     Dosage: THIS WAS THE FIRST MEDICATION FOR TREATMENT STARTED TAKING. ADMINISTER AT NIGHT WITH WATER
  2. RIVOTRIL [Concomitant]
     Active Substance: CLONAZEPAM
     Indication: ANXIETY
  3. RIVOTRIL [Concomitant]
     Active Substance: CLONAZEPAM
     Indication: CRYING
  4. FRISIUM [Concomitant]
     Active Substance: CLOBAZAM
     Indication: ANXIETY
  5. CETIRIZINE DIHYDROCHLORIDE [Concomitant]
     Active Substance: CETIRIZINE HYDROCHLORIDE
     Indication: HYPERSENSITIVITY
     Dosage: DAILY DOSE 10 MILLIGRAM, ADMINISTERED AT 01 PM.
     Route: 048
  6. DEPAKOTE ER [Suspect]
     Active Substance: DIVALPROEX SODIUM
     Dosage: DAILY DOSE 1500 MILLIGRAM, CURRENT DOSAGE
     Route: 048
     Dates: start: 20210301
  7. PAROXETIN [Concomitant]
     Active Substance: PAROXETINE HYDROCHLORIDE
     Indication: NERVOUSNESS
     Dosage: DAILY DOSE 20MG, IN THE MORNING. PATIENT DID NOT REMEMBER THE START DATE OF THIS TREATMENT
     Route: 048
  8. PAROXETIN [Concomitant]
     Active Substance: PAROXETINE HYDROCHLORIDE
     Indication: CRYING
  9. VITAMINS NOS [Concomitant]
     Active Substance: VITAMINS
     Indication: PRODUCT USED FOR UNKNOWN INDICATION
  10. DEPAKOTE ER [Suspect]
     Active Substance: DIVALPROEX SODIUM
     Indication: SEIZURE
     Dosage: ADMINISTERED IN THE MORNING AND AT NIGHT. DOSE OF THE BEGINNING OF THE TREATMENT
     Route: 048
  11. FRISIUM [Concomitant]
     Active Substance: CLOBAZAM
     Indication: SEIZURE
     Dosage: ADMINISTERED AT NIGHT. PATIENT DID NOT REMEMBER THE START DATE OF THIS TREATMENT.

REACTIONS (4)
  - Inappropriate schedule of product administration [Unknown]
  - Therapeutic response unexpected [Unknown]
  - Seizure [Not Recovered/Not Resolved]
  - Off label use [Unknown]
